FAERS Safety Report 8795668 (Version 1)
Quarter: 2012Q4

REPORT INFORMATION
  Report Type: 
  Country: US (occurrence: US)
  Receive Date: 20120919
  Receipt Date: 20120919
  Transmission Date: 20130627
  Serious: Yes (Hospitalization, Other)
  Sender: FDA-Public Use
  Company Number: US-TEVA-358959USA

PATIENT
  Age: 68 None
  Sex: Female

DRUGS (1)
  1. COPAXONE [Suspect]
     Indication: MULTIPLE SCLEROSIS
     Dates: start: 20060715

REACTIONS (6)
  - Cystitis [Unknown]
  - Kidney infection [Unknown]
  - Streptococcal infection [Unknown]
  - Multiple sclerosis relapse [Unknown]
  - Abscess [Unknown]
  - Drug administration error [Unknown]
